FAERS Safety Report 16533392 (Version 1)
Quarter: 2019Q3

REPORT INFORMATION
  Report Type: Spontaneous
  Country: US (occurrence: US)
  Receive Date: 20190705
  Receipt Date: 20190705
  Transmission Date: 20191004
  Serious: No
  Sender: FDA-Public Use
  Company Number: US-APOTEX-2019AP016582

PATIENT
  Sex: Female

DRUGS (1)
  1. ROSUVASTATIN CALCIUM. [Suspect]
     Active Substance: ROSUVASTATIN CALCIUM
     Indication: BLOOD CHOLESTEROL INCREASED
     Dosage: UNK
     Route: 065
     Dates: start: 20190527

REACTIONS (4)
  - Arthralgia [Recovered/Resolved]
  - Product substitution issue [Unknown]
  - Back pain [Recovered/Resolved]
  - Asthenia [Recovered/Resolved]
